FAERS Safety Report 11913615 (Version 3)
Quarter: 2016Q1

REPORT INFORMATION
  Report Type: Spontaneous
  Country: US (occurrence: US)
  Receive Date: 20160113
  Receipt Date: 20160204
  Transmission Date: 20160526
  Serious: No
  Sender: FDA-Public Use
  Company Number: US-PFIZER INC-2015465604

PATIENT
  Age: 60 Year
  Sex: Female
  Weight: 63 kg

DRUGS (11)
  1. CLOBETASOL [Concomitant]
     Active Substance: CLOBETASOL
     Indication: RASH PAPULAR
     Dosage: UNK (2-3 X WEEK PM IN USE TO VAGINA ONCE 4/WEEK)
     Route: 067
     Dates: start: 20141117
  2. CLOBETASOL [Concomitant]
     Active Substance: CLOBETASOL
     Indication: MULTIPLE SCLEROSIS
  3. ESTRING [Suspect]
     Active Substance: ESTRADIOL
     Indication: OESTROGEN REPLACEMENT THERAPY
  4. ESTRING [Suspect]
     Active Substance: ESTRADIOL
     Indication: DYSPAREUNIA
     Dosage: 1 DF, UNK
     Route: 067
     Dates: start: 20151214, end: 20151220
  5. AMITRIPTYLENE [Concomitant]
     Active Substance: AMITRIPTYLINE
     Indication: NECK PAIN
  6. DIAZEPAM. [Concomitant]
     Active Substance: DIAZEPAM
     Indication: MUSCLE TIGHTNESS
     Dosage: 10MG 1-3 TIMES A DAY
     Dates: start: 2013
  7. HYDROCODONE/ACETAMINOPHEN [Concomitant]
     Active Substance: ACETAMINOPHEN\HYDROCODONE
     Indication: HEADACHE
     Dosage: UNK (4-6 HR PM EPISODE)
     Dates: start: 2014
  8. AMITRIPTYLENE [Concomitant]
     Active Substance: AMITRIPTYLINE
     Indication: HEADACHE
     Dosage: 50 MG, AS NEEDED
     Dates: start: 20150317
  9. HYDROCODONE [Concomitant]
     Active Substance: HYDROCODONE
     Indication: PAIN
     Dosage: 0.5 DF, AS NEEDED
     Dates: start: 201412
  10. HYDROCODONE/ACETAMINOPHEN [Concomitant]
     Active Substance: ACETAMINOPHEN\HYDROCODONE
     Indication: NECK PAIN
  11. ESTRING [Suspect]
     Active Substance: ESTRADIOL
     Indication: ATROPHIC VULVOVAGINITIS

REACTIONS (2)
  - Drug ineffective [Unknown]
  - Vulvovaginal discomfort [Recovered/Resolved]
